FAERS Safety Report 6991734-3 (Version None)
Quarter: 2010Q3

REPORT INFORMATION
  Report Type: 
  Country: None (occurrence: None)
  Receive Date: 20100917
  Receipt Date: 20100817
  Transmission Date: 20110219
  Serious: No
  Sender: FDA-Public Use
  Company Number: US-PFIZER INC-2010104104

PATIENT
  Age: 62 Year
  Sex: Female

DRUGS (1)
  1. XALATAN [Suspect]
     Dosage: ONE DROP IN EACH EYE, 1X/DAY
     Dates: start: 20080101

REACTIONS (9)
  - DIZZINESS [None]
  - DRY THROAT [None]
  - EYE SWELLING [None]
  - EYELID DISORDER [None]
  - GROWTH OF EYELASHES [None]
  - HEADACHE [None]
  - PHARYNGEAL ERYTHEMA [None]
  - SINUS DISORDER [None]
  - THROAT IRRITATION [None]
